FAERS Safety Report 5233193-7 (Version None)
Quarter: 2007Q1

REPORT INFORMATION
  Report Type: 
  Country: None (occurrence: None)
  Receive Date: 20070207
  Receipt Date: 20070123
  Transmission Date: 20070707
  Serious: Yes (Hospitalization)
  Sender: FDA-Public Use
  Company Number: FR-MERCK-0702FRA00014

PATIENT
  Age: 39 Year
  Sex: Male

DRUGS (8)
  1. CRIXIVAN [Suspect]
     Indication: HIV INFECTION
     Route: 048
  2. ZIDOVUDINE [Suspect]
     Indication: HIV INFECTION
     Route: 048
  3. LAMIVUDINE [Suspect]
     Indication: HIV INFECTION
     Route: 048
  4. DIDANOSINE [Suspect]
     Indication: HIV INFECTION
     Route: 048
  5. STAVUDINE [Suspect]
     Indication: HIV INFECTION
     Route: 048
  6. TENOFOVIR [Suspect]
     Indication: HIV INFECTION
     Route: 048
  7. EMTRICITABINE [Suspect]
     Indication: HIV INFECTION
     Route: 048
  8. ATAZANAVIR [Suspect]
     Indication: HIV INFECTION
     Route: 048

REACTIONS (1)
  - NODULAR REGENERATIVE HYPERPLASIA [None]
